FAERS Safety Report 18375441 (Version 1)
Quarter: 2020Q4

REPORT INFORMATION
  Report Type: Report from Study
  Country: CA (occurrence: CA)
  Receive Date: 20201012
  Receipt Date: 20201012
  Transmission Date: 20210114
  Serious: Yes (Other)
  Sender: FDA-Public Use
  Company Number: CA-ASTRAZENECA-2020SF29385

PATIENT
  Age: 79 Year
  Sex: Male

DRUGS (12)
  1. AVAMYS [Suspect]
     Active Substance: FLUTICASONE FUROATE
     Indication: UPPER-AIRWAY COUGH SYNDROME
     Dosage: 2.0DF UNKNOWN
     Route: 065
  2. AVAMYS [Suspect]
     Active Substance: FLUTICASONE FUROATE
     Indication: NASAL CONGESTION
     Dosage: 2.0DF UNKNOWN
     Route: 065
  3. MONTELUKAST [Suspect]
     Active Substance: MONTELUKAST SODIUM
     Route: 065
  4. NIFEDIPINE. [Concomitant]
     Active Substance: NIFEDIPINE
  5. VALSARTAN. [Concomitant]
     Active Substance: VALSARTAN
  6. SYMBICORT [Suspect]
     Active Substance: BUDESONIDE\FORMOTEROL FUMARATE DIHYDRATE
     Dosage: 2 DF, UNKNOWN UNKNOWN
     Route: 055
  7. ACETAMINOPHEN. [Concomitant]
     Active Substance: ACETAMINOPHEN
  8. ROSUVASTATIN. [Concomitant]
     Active Substance: ROSUVASTATIN
  9. VITAMIN D3 [Concomitant]
     Active Substance: CHOLECALCIFEROL
  10. CETIRIZINE [Suspect]
     Active Substance: CETIRIZINE HYDROCHLORIDE
     Route: 065
  11. NUCALA [Suspect]
     Active Substance: MEPOLIZUMAB
     Indication: ASTHMA
     Dosage: 100.0MG UNKNOWN
     Route: 065
  12. SALBUTAMOL [Suspect]
     Active Substance: ALBUTEROL
     Route: 065

REACTIONS (16)
  - Blood count abnormal [Recovered/Resolved]
  - Mobility decreased [Recovered/Resolved]
  - Sinusitis [Recovered/Resolved]
  - Balance disorder [Recovered/Resolved]
  - Middle insomnia [Recovered/Resolved]
  - Chest discomfort [Recovered/Resolved]
  - Dyspnoea [Recovered/Resolved]
  - Lower respiratory tract infection [Recovered/Resolved]
  - Musculoskeletal disorder [Recovered/Resolved]
  - Asthma [Recovered/Resolved]
  - Drug ineffective [Recovered/Resolved]
  - Rhinitis [Recovered/Resolved]
  - Wheezing [Recovered/Resolved]
  - Cough [Recovered/Resolved]
  - Gait disturbance [Recovered/Resolved]
  - Productive cough [Recovered/Resolved]
